FAERS Safety Report 7997472-2 (Version None)
Quarter: 2011Q4

REPORT INFORMATION
  Report Type: 
  Country: None (occurrence: None)
  Receive Date: 20111221
  Receipt Date: 20111221
  Transmission Date: 20120403
  Serious: Yes (Hospitalization)
  Sender: FDA-Public Use
  Company Number: None

PATIENT
  Age: 78 Year
  Sex: Male
  Weight: 98 kg

DRUGS (8)
  1. CITALOPRAM [Concomitant]
     Route: 048
  2. LEVOTHYROXINE SODIUM [Concomitant]
     Route: 048
  3. ENOXAPARIN [Suspect]
     Indication: ANTICOAGULANT THERAPY
     Dosage: UNKNOWN
     Route: 058
     Dates: start: 20110912, end: 20110914
  4. ENOXAPARIN [Suspect]
     Indication: SURGERY
     Dosage: UNKNOWN
     Route: 058
     Dates: start: 20110912, end: 20110914
  5. WARFARIN SODIUM [Concomitant]
     Indication: ATRIAL FIBRILLATION
     Dosage: 7.5 MG
     Route: 048
     Dates: start: 20110912, end: 20110914
  6. METOPROLOL TARTRATE [Concomitant]
     Route: 048
  7. PREDNISONE TAB [Concomitant]
     Route: 048
  8. LEVETIRACETAM [Concomitant]
     Route: 048

REACTIONS (3)
  - DIZZINESS [None]
  - ANAEMIA [None]
  - RETROPERITONEAL HAEMATOMA [None]
